FAERS Safety Report 9664220 (Version 1)
Quarter: 2013Q4

REPORT INFORMATION
  Report Type: Spontaneous
  Country: US (occurrence: None)
  Receive Date: 20131030
  Receipt Date: 20131030
  Transmission Date: 20140711
  Serious: Yes (Hospitalization)
  Sender: FDA-Public Use
  Company Number: None

PATIENT
  Age: 56 Year
  Sex: Male
  Weight: 78.5 kg

DRUGS (10)
  1. VANCOMYCIN [Suspect]
     Indication: BACTERAEMIA
     Route: 042
     Dates: start: 20110430, end: 20110519
  2. HYDROMORPHONE, [Concomitant]
  3. DOCUSATE [Concomitant]
  4. DULCOLAX [Concomitant]
  5. FERROUS SULFATE [Concomitant]
  6. INSULIN ASPART [Concomitant]
  7. INSULIN DETEMIR [Concomitant]
  8. MIRALAX [Concomitant]
  9. SENNA [Concomitant]
  10. TAMSULOSIN [Concomitant]

REACTIONS (2)
  - Renal failure acute [None]
  - Antibiotic level above therapeutic [None]
